FAERS Safety Report 6909279-5 (Version None)
Quarter: 2010Q3

REPORT INFORMATION
  Report Type: 
  Country: None (occurrence: None)
  Receive Date: 20100805
  Receipt Date: 20100726
  Transmission Date: 20110219
  Serious: Yes (Other)
  Sender: FDA-Public Use
  Company Number: PHHY2010US49206

PATIENT
  Sex: Male

DRUGS (9)
  1. EXELON [Suspect]
     Dosage: 9.5 MG, UNK
     Route: 062
  2. EXELON [Suspect]
     Dosage: 4.6 MG, UNK
     Route: 062
  3. NAMENDA [Concomitant]
  4. VITAMIN B NOS [Concomitant]
  5. BACTRIM [Concomitant]
     Dosage: UNK
  6. OMEPRAZOLE [Concomitant]
  7. ACTONEL [Concomitant]
     Dosage: ONCE A MONTH
  8. LUPRON [Concomitant]
     Dosage: NOT REGULAR DOSE
  9. COQ10 [Concomitant]
     Dosage: UNK

REACTIONS (5)
  - BOWEL MOVEMENT IRREGULARITY [None]
  - DIARRHOEA [None]
  - URINARY TRACT DISORDER [None]
  - URINARY TRACT OPERATION [None]
  - WRONG TECHNIQUE IN DRUG USAGE PROCESS [None]
